FAERS Safety Report 12411682 (Version 1)
Quarter: 2016Q2

REPORT INFORMATION
  Report Type: Spontaneous
  Country: CA (occurrence: CA)
  Receive Date: 20160527
  Receipt Date: 20160527
  Transmission Date: 20160815
  Serious: Yes (Other)
  Sender: FDA-Public Use
  Company Number: CA-BEH-2016063076

PATIENT
  Age: 3 Year
  Sex: Male

DRUGS (1)
  1. INTRAVENOUS IMMUNOGLOBULIN [Suspect]
     Active Substance: HUMAN IMMUNOGLOBULIN G
     Indication: ATAXIA TELANGIECTASIA
     Route: 042

REACTIONS (3)
  - Drug ineffective [Unknown]
  - Adverse event [Unknown]
  - Granuloma skin [Unknown]
